FAERS Safety Report 9337555 (Version 1)
Quarter: 2013Q2

REPORT INFORMATION
  Report Type: Report from Study
  Country: US (occurrence: US)
  Receive Date: 20130607
  Receipt Date: 20130607
  Transmission Date: 20140414
  Serious: Yes (Other)
  Sender: FDA-Public Use
  Company Number: US-BAXTER-2013BAX021117

PATIENT
  Age: 10 Month
  Sex: Male

DRUGS (1)
  1. FEIBA NF [Suspect]
     Indication: PRODUCT USED FOR UNKNOWN INDICATION
     Dosage: UNKNOWN
     Route: 065

REACTIONS (2)
  - Haemorrhage [Unknown]
  - Drug ineffective [Unknown]
